FAERS Safety Report 7429026-0 (Version None)
Quarter: 2011Q2

REPORT INFORMATION
  Report Type: 
  Country: None (occurrence: None)
  Receive Date: 20110421
  Receipt Date: 20110413
  Transmission Date: 20111010
  Serious: Yes (Death)
  Sender: FDA-Public Use
  Company Number: GB-ROCHE-755506

PATIENT
  Sex: Female
  Weight: 64 kg

DRUGS (3)
  1. XELODA [Suspect]
     Route: 048
     Dates: start: 20110112, end: 20110122
  2. OXALIPLATIN [Suspect]
     Route: 041
     Dates: start: 20110112
  3. OMEPRAZOLE [Concomitant]
     Indication: ANTACID THERAPY
     Route: 048

REACTIONS (1)
  - COLITIS [None]
